FAERS Safety Report 7470898-1 (Version None)
Quarter: 2011Q2

REPORT INFORMATION
  Report Type: 
  Country: None (occurrence: None)
  Receive Date: 20110506
  Receipt Date: 20110506
  Transmission Date: 20111010
  Serious: Yes (Disabling)
  Sender: FDA-Public Use
  Company Number: None

PATIENT
  Sex: Female
  Weight: 58.9676 kg

DRUGS (6)
  1. CYMBALTA [Suspect]
     Indication: HYPOAESTHESIA
     Dosage: 30MG ONCE DAILY CAPSULE
     Dates: start: 20110415
  2. CYMBALTA [Suspect]
     Indication: PAIN IN EXTREMITY
     Dosage: 30MG ONCE DAILY CAPSULE
     Dates: start: 20110415
  3. CYMBALTA [Suspect]
     Indication: HYPOAESTHESIA
     Dosage: 30MG ONCE DAILY CAPSULE
     Dates: start: 20110417
  4. CYMBALTA [Suspect]
     Indication: PAIN IN EXTREMITY
     Dosage: 30MG ONCE DAILY CAPSULE
     Dates: start: 20110417
  5. CYMBALTA [Suspect]
     Indication: HYPOAESTHESIA
     Dosage: 30MG ONCE DAILY CAPSULE
     Dates: start: 20110416
  6. CYMBALTA [Suspect]
     Indication: PAIN IN EXTREMITY
     Dosage: 30MG ONCE DAILY CAPSULE
     Dates: start: 20110416

REACTIONS (8)
  - PALPITATIONS [None]
  - MUSCLE TIGHTNESS [None]
  - BLOOD PRESSURE INCREASED [None]
  - TENSION [None]
  - TINNITUS [None]
  - INSOMNIA [None]
  - VISION BLURRED [None]
  - HEART RATE INCREASED [None]
